FAERS Safety Report 21411198 (Version 1)
Quarter: 2022Q4

REPORT INFORMATION
  Report Type: Report from Study
  Country: US (occurrence: US)
  Receive Date: 20221005
  Receipt Date: 20221005
  Transmission Date: 20230113
  Serious: Yes (Hospitalization)
  Sender: FDA-Public Use
  Company Number: US-ABBVIE-4137101

PATIENT
  Sex: Female

DRUGS (1)
  1. HUMIRA [Suspect]
     Active Substance: ADALIMUMAB
     Indication: Rheumatoid arthritis
     Route: 058
     Dates: end: 20220903

REACTIONS (4)
  - Pneumonia [Unknown]
  - Bacterial vaginosis [Recovering/Resolving]
  - Urinary tract infection [Recovering/Resolving]
  - Sinusitis [Recovering/Resolving]
